FAERS Safety Report 6200700-7 (Version None)
Quarter: 2009Q2

REPORT INFORMATION
  Report Type: 
  Country: None (occurrence: None)
  Receive Date: 20090522
  Receipt Date: 20090515
  Transmission Date: 20091009
  Serious: Yes (Disabling)
  Sender: FDA-Public Use
  Company Number: AR-MERCK-0905ARG00007

PATIENT
  Age: 59 Year
  Sex: Female

DRUGS (1)
  1. COSOPT [Suspect]
     Indication: OCULAR HYPERTENSION
     Route: 047
     Dates: start: 20080801, end: 20081001

REACTIONS (2)
  - BLISTER INFECTED [None]
  - ERYTHEMA [None]
